FAERS Safety Report 7115642-2 (Version None)
Quarter: 2010Q4

REPORT INFORMATION
  Report Type: 
  Country: None (occurrence: None)
  Receive Date: 20101122
  Receipt Date: 20101112
  Transmission Date: 20110411
  Serious: Yes (Hospitalization)
  Sender: FDA-Public Use
  Company Number: GB-MILLENNIUM PHARMACEUTICALS, INC.-2010-05396

PATIENT

DRUGS (8)
  1. VELCADE [Suspect]
     Indication: MULTIPLE MYELOMA
     Dosage: UNK, UNK
     Route: 065
     Dates: start: 20100601, end: 20100813
  2. VELCADE [Suspect]
     Dosage: 1.3 MG/M2, CYCLIC
     Route: 042
     Dates: start: 20100713, end: 20100924
  3. DEXAMETHASONE [Concomitant]
     Indication: MULTIPLE MYELOMA
     Dosage: 20 MG, CYCLIC
     Dates: start: 20100713, end: 20100924
  4. ACYCLOVIR [Concomitant]
     Dosage: 400 MG, UNK
     Dates: start: 20100713, end: 20101001
  5. CANDESARTAN CILEXETIL [Concomitant]
     Dosage: 2 MG, UNK
  6. ORAMORPH SR [Concomitant]
     Dosage: UNK
  7. LEVOTHYROXINE SODIUM [Concomitant]
     Dosage: 50 UG, UNK
  8. PAMIDRONATE DISODIUM [Concomitant]
     Dosage: UNK
     Dates: start: 20090101

REACTIONS (4)
  - CLAVICLE FRACTURE [None]
  - DRUG INEFFECTIVE [None]
  - HYPERCALCAEMIA [None]
  - SPINAL FRACTURE [None]
